FAERS Safety Report 10903353 (Version 2)
Quarter: 2015Q1

REPORT INFORMATION
  Report Type: Spontaneous
  Country: US (occurrence: None)
  Receive Date: 20150304
  Receipt Date: 20150311
  Transmission Date: 20150721
  Serious: Yes (Other)
  Sender: FDA-Public Use
  Company Number: 150054

PATIENT
  Age: 30 Year
  Sex: Female

DRUGS (1)
  1. GOLYTELY [Suspect]
     Active Substance: POLYETHYLENE GLYCOL 3350\POTASSIUM CHLORIDE\SODIUM BICARBONATE\SODIUM CHLORIDE\SODIUM SULFATE ANHYDROUS
     Indication: COLONOSCOPY
     Route: 048
     Dates: start: 2011

REACTIONS (8)
  - Chest discomfort [None]
  - Drug hypersensitivity [None]
  - Gastrointestinal disorder [None]
  - Erythema [None]
  - Throat irritation [None]
  - Hyperplasia [None]
  - Pruritus generalised [None]
  - Urticaria [None]
